FAERS Safety Report 4609726-8 (Version None)
Quarter: 2005Q1

REPORT INFORMATION
  Report Type: 
  Country: None (occurrence: None)
  Receive Date: 20050314
  Receipt Date: 20050314
  Transmission Date: 20050727
  Serious: Yes (Life-Threatening, Hospitalization)
  Sender: FDA-Public Use
  Company Number: None

PATIENT
  Sex: Male

DRUGS (2)
  1. TOPIRAMATE [Suspect]
     Indication: ABNORMAL BEHAVIOUR
     Dosage: 200MG BID ORAL
     Route: 048
     Dates: start: 20010701, end: 20030701
  2. LORAEPAM [Concomitant]

REACTIONS (5)
  - COGNITIVE DISORDER [None]
  - HYPERTHERMIA [None]
  - NERVOUS SYSTEM DISORDER [None]
  - STATUS EPILEPTICUS [None]
  - TREMOR [None]
